FAERS Safety Report 9703326 (Version 1)
Quarter: 2013Q4

REPORT INFORMATION
  Report Type: Spontaneous
  Country: BR (occurrence: BR)
  Receive Date: 20131122
  Receipt Date: 20131122
  Transmission Date: 20140711
  Serious: Yes (Other)
  Sender: FDA-Public Use
  Company Number: BR-AMGEN-BRASP2013081866

PATIENT
  Age: 30 Year
  Sex: Male
  Weight: 83 kg

DRUGS (2)
  1. ENBREL [Suspect]
     Indication: SPONDYLOARTHROPATHY
     Dosage: 50 MG, 1X/WEEK
     Route: 058
     Dates: start: 20130108, end: 20130220
  2. MESALAZINE [Concomitant]
     Dosage: UNK

REACTIONS (2)
  - Intestinal fistula [Unknown]
  - Off label use [Unknown]
